FAERS Safety Report 9059931 (Version 3)
Quarter: 2013Q1

REPORT INFORMATION
  Report Type: Spontaneous
  Country: US (occurrence: US)
  Receive Date: 20130212
  Receipt Date: 20130315
  Transmission Date: 20140127
  Serious: Yes (Other)
  Sender: FDA-Public Use
  Company Number: PHEH2013US003273

PATIENT
  Sex: Female

DRUGS (4)
  1. RECLAST [Suspect]
     Indication: OSTEOPOROSIS
     Dosage: UNK UKN, UNK
     Route: 042
  2. RECLAST [Suspect]
     Dosage: UNK UKN, UNK
     Route: 042
  3. RECLAST [Suspect]
     Dosage: UNK UKN, UNK
     Route: 042
  4. RECLAST [Suspect]
     Dosage: UNK UKN, UNK
     Route: 042

REACTIONS (3)
  - Abscess [Unknown]
  - Nodule [Unknown]
  - Impaired healing [Not Recovered/Not Resolved]
